FAERS Safety Report 7560549-X (Version None)
Quarter: 2011Q2

REPORT INFORMATION
  Report Type: 
  Country: None (occurrence: None)
  Receive Date: 20110621
  Receipt Date: 20100909
  Transmission Date: 20111010
  Serious: No
  Sender: FDA-Public Use
  Company Number: US-ASTRAZENECA-2010SE42353

PATIENT
  Age: 59 Year
  Sex: Male

DRUGS (7)
  1. AVALIDE [Concomitant]
  2. ENTOCORT EC [Suspect]
     Route: 048
  3. ENTOCORT EC [Suspect]
     Route: 048
  4. COLAZOL [Concomitant]
  5. NORVASC [Concomitant]
  6. ENTOCORT EC [Suspect]
     Indication: CROHN'S DISEASE
     Route: 048
     Dates: start: 20100801
  7. ENTOCORT EC [Suspect]
     Route: 048

REACTIONS (3)
  - ANXIETY [None]
  - NERVOUSNESS [None]
  - BRONCHITIS [None]
